FAERS Safety Report 13782457 (Version 1)
Quarter: 2017Q3

REPORT INFORMATION
  Report Type: Spontaneous
  Country: US (occurrence: US)
  Receive Date: 20170724
  Receipt Date: 20170724
  Transmission Date: 20171127
  Serious: No
  Sender: FDA-Public Use
  Company Number: US-PRINSTON PHARMACEUTICAL INC.-2017PRN00240

PATIENT
  Age: 70 Year
  Sex: Female
  Weight: 86.17 kg

DRUGS (16)
  1. COQ10 [Concomitant]
     Active Substance: UBIDECARENONE
     Dosage: 100 MG, 3X/DAY
  2. CALCIUM 500 MG WITH VITAMIN D AND POTASSIUM [Concomitant]
     Dosage: 1 DOSAGE UNITS, 1X/DAY
     Route: 048
  3. FUROSEMIDE. [Concomitant]
     Active Substance: FUROSEMIDE
     Dosage: 40 MG, 1X/DAY IN PM
  4. SPIRONOLACTONE. [Concomitant]
     Active Substance: SPIRONOLACTONE
     Dosage: 25 MG, 1X/DAY IN AM
  5. VITAMIN B6 [Concomitant]
     Active Substance: PYRIDOXINE HYDROCHLORIDE
     Dosage: 50 MG, 2X/DAY
  6. TYLENOL [Concomitant]
     Active Substance: ACETAMINOPHEN
     Dosage: 600 MG, AS NEEDED FOR SLEEP
  7. FUROSEMIDE. [Concomitant]
     Active Substance: FUROSEMIDE
     Dosage: 20 MG, 1X/DAY IN AM
  8. SIMVASTATIN. [Concomitant]
     Active Substance: SIMVASTATIN
     Dosage: 20 MG, 1X/DAY
  9. NITRO PATCH [Concomitant]
     Active Substance: NITROGLYCERIN
     Dosage: 0.2 ?G, 1X/DAY
  10. ASPIRIN. [Concomitant]
     Active Substance: ASPIRIN
     Dosage: 325 MG, 1X/DAY
  11. VITAMIN D3 [Concomitant]
     Active Substance: CHOLECALCIFEROL
     Dosage: 1000 IU, 1X/DAY
  12. LOSARTAN POTASSIUM. [Suspect]
     Active Substance: LOSARTAN POTASSIUM
     Indication: CARDIAC FAILURE CONGESTIVE
     Dosage: 25 MG, 1X/DAY IN THE EVENING
     Route: 048
     Dates: start: 20170228, end: 2017
  13. METOPROLOL ER [Concomitant]
     Active Substance: METOPROLOL SUCCINATE
     Dosage: 25 MG, 1X/DAY
  14. MELATONIN [Concomitant]
     Active Substance: MELATONIN
     Dosage: 500 MG, 1X/DAY AT NIGHT
  15. L-TYROSINE [Concomitant]
     Dosage: 250 MG, 2X/DAY ON AN EMPTY STOMACH
  16. VENLAFAXINE [Concomitant]
     Active Substance: VENLAFAXINE HYDROCHLORIDE
     Dosage: 37.5 MG, 2X/DAY

REACTIONS (4)
  - Off label use [Recovered/Resolved]
  - Loss of personal independence in daily activities [Recovering/Resolving]
  - Asthenia [Recovering/Resolving]
  - Product substitution issue [Recovered/Resolved]

NARRATIVE: CASE EVENT DATE: 20170228
